FAERS Safety Report 25534533 (Version 2)
Quarter: 2025Q3

REPORT INFORMATION
  Report Type: Spontaneous
  Country: EU (occurrence: EU)
  Receive Date: 20250709
  Receipt Date: 20250721
  Transmission Date: 20251020
  Serious: Yes (Other)
  Sender: PFIZER
  Company Number: EU-PFIZER INC-PV202500081072

PATIENT
  Age: 10 Year
  Sex: Male

DRUGS (1)
  1. NGENLA [Suspect]
     Active Substance: SOMATROGON-GHLA
     Route: 058

REACTIONS (3)
  - Lipodystrophy acquired [Unknown]
  - Injection site erythema [Unknown]
  - Lack of injection site rotation [Unknown]
